FAERS Safety Report 16405988 (Version 9)
Quarter: 2020Q1

REPORT INFORMATION
  Report Type: Spontaneous
  Country: US (occurrence: US)
  Receive Date: 20190607
  Receipt Date: 20200203
  Transmission Date: 20200409
  Serious: Yes (Hospitalization)
  Sender: FDA-Public Use
  Company Number: US-ACTELION-A-NJ2019-191397

PATIENT
  Age: 69 Year
  Sex: Male
  Weight: 92.06 kg

DRUGS (8)
  1. VELETRI [Suspect]
     Active Substance: EPOPROSTENOL
     Dosage: 13 NG/KG, PER MIN
     Route: 042
  2. ELIQUIS [Concomitant]
     Active Substance: APIXABAN
  3. VELETRI [Suspect]
     Active Substance: EPOPROSTENOL
     Dosage: 11 NG/KG
     Route: 042
  4. VELETRI [Suspect]
     Active Substance: EPOPROSTENOL
     Dosage: 7 NG/KG, PER MIN
     Route: 042
     Dates: start: 201905
  5. VELETRI [Suspect]
     Active Substance: EPOPROSTENOL
     Dosage: 19.5 NG/KG, PER MIN
     Route: 042
  6. VELETRI [Suspect]
     Active Substance: EPOPROSTENOL
     Indication: PULMONARY ARTERIAL HYPERTENSION
     Dosage: 17 NG/KG, PER MIN
     Route: 042
  7. VELETRI [Suspect]
     Active Substance: EPOPROSTENOL
     Dosage: 4 NG/KG, PER MIN
     Route: 042
  8. VELETRI [Suspect]
     Active Substance: EPOPROSTENOL
     Dosage: 5 NG/KG, PER MIN
     Route: 042

REACTIONS (17)
  - Dyspnoea exertional [Recovering/Resolving]
  - Vomiting [Recovered/Resolved]
  - Device dislocation [Recovered/Resolved]
  - Headache [Unknown]
  - Fatigue [Unknown]
  - Pain in extremity [Unknown]
  - Atrial fibrillation [Unknown]
  - Malaise [Recovered/Resolved]
  - Catheter site pruritus [Recovering/Resolving]
  - Diarrhoea [Unknown]
  - Pain in jaw [Unknown]
  - Flushing [Unknown]
  - Catheter site bruise [Recovering/Resolving]
  - Influenza like illness [Unknown]
  - Nausea [Unknown]
  - Asthenia [Recovering/Resolving]
  - Catheter site discharge [Recovering/Resolving]

NARRATIVE: CASE EVENT DATE: 201905
